FAERS Safety Report 10420561 (Version 1)
Quarter: 2014Q2

REPORT INFORMATION
  Report Type: Spontaneous
  Country: US (occurrence: None)
  Receive Date: 20140627
  Receipt Date: 20140627
  Transmission Date: 20141212
  Serious: Yes (Hospitalization, Other)
  Sender: FDA-Public Use
  Company Number: PHEH2013US010872

PATIENT
  Age: 66 Year
  Sex: Female

DRUGS (2)
  1. DIOVAN HCT (VALSARTAN, HYDROCHLOROTHIAZIDE) UNKNOWN [Suspect]
     Dates: end: 201212
  2. HYDROCHLOROTHIAZIDE, VALSARTAN (VALSARTAN,HYDROCHLOROTHIAZIDE) UNKNOWN, 320/25 MG [Suspect]
     Indication: BLOOD PRESSURE ABNORMAL
     Dosage: 1 DF (320 MG VALS+ 25 MG HCT)
     Dates: start: 201212

REACTIONS (1)
  - Hypertension [None]
